FAERS Safety Report 6457556-7 (Version None)
Quarter: 2009Q4

REPORT INFORMATION
  Report Type: 
  Country: None (occurrence: None)
  Receive Date: 20091125
  Receipt Date: 20091116
  Transmission Date: 20100525
  Serious: Yes (Other)
  Sender: FDA-Public Use
  Company Number: PHEH2009US16179

PATIENT
  Sex: Male

DRUGS (5)
  1. ZOMETA [Suspect]
     Dosage: UNK
     Dates: start: 20091001
  2. TRAMADOL HCL [Concomitant]
  3. MORPHINE [Concomitant]
  4. DIPHENOXYLATE [Concomitant]
  5. LOVENOX [Concomitant]

REACTIONS (1)
  - CEREBROVASCULAR ACCIDENT [None]
